FAERS Safety Report 9154791 (Version 1)
Quarter: 2013Q1

REPORT INFORMATION
  Report Type: Spontaneous
  Country: US (occurrence: None)
  Receive Date: 20130305
  Receipt Date: 20130305
  Transmission Date: 20140127
  Serious: No
  Sender: FDA-Public Use
  Company Number: None

PATIENT
  Age: 15 Year
  Sex: Female
  Weight: 86.64 kg

DRUGS (1)
  1. ZIPRASIDONE [Suspect]
     Indication: AFFECTIVE DISORDER
     Route: 048
     Dates: start: 20121116, end: 20130111

REACTIONS (3)
  - Sleep disorder [None]
  - Product substitution issue [None]
  - Drug ineffective [None]
